FAERS Safety Report 9156935 (Version 2)
Quarter: 2013Q2

REPORT INFORMATION
  Report Type: Spontaneous
  Country: JP (occurrence: JP)
  Receive Date: 20130312
  Receipt Date: 20130619
  Transmission Date: 20140414
  Serious: Yes (Other)
  Sender: FDA-Public Use
  Company Number: PHHY2013JP023045

PATIENT
  Age: 80 Year
  Sex: Female

DRUGS (3)
  1. EXELON PATCH [Suspect]
     Indication: DEMENTIA WITH LEWY BODIES
     Dosage: 18 MG, DAILY
     Route: 062
  2. COMTAN [Suspect]
     Dosage: UNK UKN, UNK
     Route: 048
  3. EC DOPARL [Suspect]
     Route: 048

REACTIONS (4)
  - Neuroleptic malignant syndrome [Unknown]
  - Myoglobin blood increased [Unknown]
  - Vomiting [Unknown]
  - Diarrhoea [Unknown]
